FAERS Safety Report 4711060-2 (Version None)
Quarter: 2005Q3

REPORT INFORMATION
  Report Type: 
  Country: None (occurrence: None)
  Receive Date: 20050708
  Receipt Date: 20050708
  Transmission Date: 20060218
  Serious: Yes (Life-Threatening)
  Sender: FDA-Public Use
  Company Number: None

PATIENT
  Sex: Male
  Weight: 72.1219 kg

DRUGS (3)
  1. DEPAKOTE ER [Suspect]
     Indication: SCHIZOPHRENIA, UNDIFFERENTIATED TYPE
     Dosage: 1000 MG HS ORAL
     Route: 048
     Dates: start: 20040920, end: 20050502
  2. SEROQUEL [Suspect]
     Dosage: 800 MG/DAY BID ORAL
     Route: 048
     Dates: start: 20031220, end: 20050519
  3. PROTONIX [Concomitant]

REACTIONS (2)
  - LEUKOPENIA [None]
  - NEUTROPENIA [None]
